FAERS Safety Report 15741020 (Version 1)
Quarter: 2018Q4

REPORT INFORMATION
  Report Type: Spontaneous
  Country: US (occurrence: US)
  Receive Date: 20181219
  Receipt Date: 20181219
  Transmission Date: 20190205
  Serious: Yes (Hospitalization)
  Sender: FDA-Public Use
  Company Number: None

PATIENT
  Sex: Male

DRUGS (14)
  1. PULMOZYME [Concomitant]
     Active Substance: DORNASE ALFA
  2. LANTUS [Concomitant]
     Active Substance: INSULIN GLARGINE
  3. AZITHROMYCIN ANHYDROUS. [Concomitant]
     Active Substance: AZITHROMYCIN ANHYDROUS
  4. MOXIFLOXACIN. [Concomitant]
     Active Substance: MOXIFLOXACIN
  5. SODIUM CHLORIDE. [Concomitant]
     Active Substance: SODIUM CHLORIDE
  6. ETHAMBUTOL [Concomitant]
     Active Substance: ETHAMBUTOL HYDROCHLORIDE
  7. PHYTONADIONE. [Concomitant]
     Active Substance: PHYTONADIONE
  8. SYMDEKO [Concomitant]
     Active Substance: IVACAFTOR\TEZACAFTOR
  9. VORICONAZOLE. [Concomitant]
     Active Substance: VORICONAZOLE
  10. URSODIOL. [Concomitant]
     Active Substance: URSODIOL
  11. VITAMIN D3 [Concomitant]
     Active Substance: CHOLECALCIFEROL
  12. TOBI PODHALER [Suspect]
     Active Substance: TOBRAMYCIN
     Indication: CYSTIC FIBROSIS
     Dosage: ?          OTHER FREQUENCY:BID X28, OFF 28;?
     Route: 055
     Dates: start: 20170810
  13. LEVALBUTEROL. [Concomitant]
     Active Substance: LEVALBUTEROL
  14. CREON [Concomitant]
     Active Substance: PANCRELIPASE AMYLASE\PANCRELIPASE LIPASE\PANCRELIPASE PROTEASE

REACTIONS (2)
  - Hospitalisation [None]
  - Cystic fibrosis [None]
